FAERS Safety Report 18955585 (Version 1)
Quarter: 2021Q1

REPORT INFORMATION
  Report Type: Report from Study
  Country: US (occurrence: US)
  Receive Date: 20210302
  Receipt Date: 20210302
  Transmission Date: 20210420
  Serious: No
  Sender: FDA-Public Use
  Company Number: NVSC2021US039773

PATIENT
  Sex: Female

DRUGS (1)
  1. COSENTYX [Suspect]
     Active Substance: SECUKINUMAB
     Indication: PSORIASIS
     Dosage: 300 MG, 0,1,2,3,4 THEN Q4W
     Route: 058

REACTIONS (9)
  - Drug ineffective [Unknown]
  - Skin fissures [Unknown]
  - Erythema [Unknown]
  - Paraesthesia [Unknown]
  - Dry skin [Unknown]
  - Sensitive skin [Unknown]
  - Burning sensation [Unknown]
  - Pruritus [Unknown]
  - Pain in extremity [Unknown]
